FAERS Safety Report 6110543-0 (Version None)
Quarter: 2009Q1

REPORT INFORMATION
  Report Type: 
  Country: None (occurrence: None)
  Receive Date: 20090310
  Receipt Date: 20090302
  Transmission Date: 20090719
  Serious: Yes (Hospitalization)
  Sender: FDA-Public Use
  Company Number: US-B.I. PHARMACEUTICALS,INC./RIDGEFIELD-2009-BP-02544BP

PATIENT
  Sex: Female

DRUGS (13)
  1. SPIRIVA [Suspect]
     Indication: CHRONIC OBSTRUCTIVE PULMONARY DISEASE
     Dosage: 18MCG
     Route: 055
     Dates: start: 20080201
  2. ADVAIR HFA [Concomitant]
     Indication: CHRONIC OBSTRUCTIVE PULMONARY DISEASE
  3. ALBUTEROL [Concomitant]
     Indication: CHRONIC OBSTRUCTIVE PULMONARY DISEASE
  4. DIAZEPAM [Concomitant]
     Indication: NERVOUSNESS
  5. DIAZEPAM [Concomitant]
     Indication: IRRITABILITY
  6. BETAPACE [Concomitant]
     Indication: HEART RATE IRREGULAR
  7. NORVASC [Concomitant]
     Indication: HYPERTENSION
     Dosage: 10MG
  8. ZOCOR [Concomitant]
     Indication: BLOOD CHOLESTEROL INCREASED
  9. METOPROLOL [Concomitant]
     Indication: HYPERTENSION
     Dosage: 100MG
  10. METOPROLOL [Concomitant]
     Indication: HEART RATE IRREGULAR
  11. SYNTHROID [Concomitant]
     Indication: HYPOTHYROIDISM
  12. LASIX [Concomitant]
     Indication: FLUID RETENTION
     Dosage: 40MG
  13. KLOR-CON [Concomitant]
     Indication: BLOOD POTASSIUM DECREASED

REACTIONS (7)
  - ASTHENIA [None]
  - BACK PAIN [None]
  - DYSPHONIA [None]
  - DYSPNOEA [None]
  - INFLUENZA [None]
  - MUSCLE TIGHTNESS [None]
  - MUSCULOSKELETAL PAIN [None]
